FAERS Safety Report 5373300-9 (Version None)
Quarter: 2007Q2

REPORT INFORMATION
  Report Type: 
  Country: None (occurrence: None)
  Receive Date: 20070626
  Receipt Date: 20070626
  Transmission Date: 20071010
  Serious: Yes (Hospitalization)
  Sender: FDA-Public Use
  Company Number: None

PATIENT
  Age: 7 Year
  Sex: Male
  Weight: 22 kg

DRUGS (1)
  1. INVEGA [Suspect]
     Indication: BIPOLAR DISORDER
     Dosage: 3 MG Q DAILY PO
     Route: 048
     Dates: start: 20070619, end: 20070622

REACTIONS (4)
  - DYSTONIA [None]
  - MENTAL STATUS CHANGES [None]
  - TACHYCARDIA [None]
  - TRISMUS [None]
